FAERS Safety Report 12186886 (Version 1)
Quarter: 2016Q1

REPORT INFORMATION
  Report Type: Spontaneous
  Country: US (occurrence: None)
  Receive Date: 20160316
  Receipt Date: 20160316
  Transmission Date: 20160526
  Serious: No
  Sender: FDA-Public Use
  Company Number: None

PATIENT
  Age: 68 Year
  Sex: Male
  Weight: 76.2 kg

DRUGS (11)
  1. VITAMIN D [Concomitant]
     Active Substance: CHOLECALCIFEROL
  2. AMBIN [Concomitant]
  3. LOVASTATIN. [Concomitant]
     Active Substance: LOVASTATIN
  4. FISH OIL [Concomitant]
     Active Substance: FISH OIL
  5. CELECOXIB 200MG APOTEX [Suspect]
     Active Substance: CELECOXIB
     Indication: MUSCULOSKELETAL PAIN
     Dosage: ONE PER DAY
     Route: 048
     Dates: start: 20160303, end: 20160314
  6. CELECOXIB 200MG APOTEX [Suspect]
     Active Substance: CELECOXIB
     Indication: ARTHRITIS
     Dosage: ONE PER DAY
     Route: 048
     Dates: start: 20160303, end: 20160314
  7. VALIUM [Concomitant]
     Active Substance: DIAZEPAM
  8. VITAMIN E [Concomitant]
     Active Substance: .ALPHA.-TOCOPHEROL
  9. GLUCOSAMIN [Concomitant]
  10. BETA CAROTINE [Concomitant]
  11. LISCINOPRIL [Concomitant]
     Active Substance: LISINOPRIL

REACTIONS (3)
  - Drug ineffective [None]
  - Rash [None]
  - Erythema [None]

NARRATIVE: CASE EVENT DATE: 20160314
